FAERS Safety Report 21008046 (Version 10)
Quarter: 2023Q2

REPORT INFORMATION
  Report Type: Report from Study
  Country: US (occurrence: US)
  Receive Date: 20220627
  Receipt Date: 20230524
  Transmission Date: 20230722
  Serious: Yes (Hospitalization)
  Sender: FDA-Public Use
  Company Number: US-ABBVIE-22K-163-4444001-00

PATIENT
  Sex: Male

DRUGS (3)
  1. HUMIRA [Suspect]
     Active Substance: ADALIMUMAB
     Indication: Rheumatoid arthritis
     Dosage: TIME INTERVAL: TOTAL: DAY 1. FORM STRENGTH: 80 MG, FREQUENCY; ONE IN ONCE
     Route: 058
     Dates: start: 20211216, end: 20211216
  2. HUMIRA [Suspect]
     Active Substance: ADALIMUMAB
     Indication: Crohn^s disease
     Dosage: TIME INTERVAL: TOTAL: DAY 15, FREQUENCY; ONE IN ONCE, FORM STRENGTH: 80 MG
     Route: 058
     Dates: start: 20211231, end: 20211231
  3. PFIZER-BIONTECH COVID-19 VACCINE [Concomitant]
     Active Substance: TOZINAMERAN
     Indication: COVID-19 immunisation
     Dosage: TIME INTERVAL: TOTAL: FREQUENCY: ONE IN ONCE
     Route: 030

REACTIONS (12)
  - Gastric ulcer [Recovering/Resolving]
  - Crohn^s disease [Unknown]
  - Arthralgia [Unknown]
  - Blood pressure abnormal [Unknown]
  - Constipation [Recovering/Resolving]
  - Pain [Unknown]
  - Off label use [Unknown]
  - Insomnia [Unknown]
  - Back pain [Unknown]
  - Abdominal distension [Unknown]
  - Somnolence [Recovering/Resolving]
  - Therapeutic response shortened [Unknown]

NARRATIVE: CASE EVENT DATE: 20220101
